FAERS Safety Report 25838013 (Version 1)
Quarter: 2025Q3

REPORT INFORMATION
  Report Type: Spontaneous
  Country: EU (occurrence: EU)
  Receive Date: 20250923
  Receipt Date: 20250923
  Transmission Date: 20251021
  Serious: Yes (Life-Threatening, Other)
  Sender: IDORSIA PHARMACEUTICALS
  Company Number: None

PATIENT
  Age: 50 Year
  Sex: Female
  Weight: 70 kg

DRUGS (12)
  1. QUVIVIQ [Suspect]
     Active Substance: DARIDOREXANT
     Indication: Poisoning deliberate
     Dosage: 225 MG, QD (9 X 25 MG)
     Route: 048
     Dates: start: 20250902, end: 20250902
  2. SKENAN [Suspect]
     Active Substance: MORPHINE SULFATE
     Indication: Poisoning deliberate
     Dosage: 220 MG, QD (22X 10 MG)
     Route: 048
     Dates: start: 20250902, end: 20250902
  3. PRAZEPAM [Suspect]
     Active Substance: PRAZEPAM
     Indication: Poisoning deliberate
     Dosage: 400 MG, QD  (40 X 10 MG)
     Route: 048
     Dates: start: 20250902, end: 20250902
  4. SERTRALINE [Suspect]
     Active Substance: SERTRALINE HYDROCHLORIDE
     Indication: Depression
     Route: 048
     Dates: start: 20240821, end: 20250902
  5. ACETAMINOPHEN [Suspect]
     Active Substance: ACETAMINOPHEN
     Indication: Poisoning deliberate
     Dosage: UNK UNK, QD
     Route: 048
     Dates: start: 20250902, end: 20250902
  6. ELIQUIS [Concomitant]
     Active Substance: APIXABAN
     Indication: Pulmonary embolism
     Dosage: 2.5 MG, BID
  7. PREDNISONE [Concomitant]
     Active Substance: PREDNISONE
     Indication: Sciatica
     Dosage: 10 MG, QD IN MORNING
     Dates: start: 202501
  8. ALPRAZOLAM [Concomitant]
     Active Substance: ALPRAZOLAM
  9. ABILIFY [Concomitant]
     Active Substance: ARIPIPRAZOLE
     Dosage: 20 MG, QD
  10. QUETIAPINE [Concomitant]
     Active Substance: QUETIAPINE
     Dosage: 400 MG, QD
  11. CYAMEMAZINE [Concomitant]
     Active Substance: CYAMEMAZINE
  12. TROPATEPINE HYDROCHLORIDE [Concomitant]
     Active Substance: TROPATEPINE HYDROCHLORIDE
     Dosage: 10 MG, BID

REACTIONS (5)
  - Nervous system disorder [Recovered/Resolved]
  - Respiratory failure [Recovered/Resolved]
  - Intentional product misuse [Recovered/Resolved]
  - Poisoning deliberate [Recovered/Resolved]
  - Liver injury [Recovering/Resolving]

NARRATIVE: CASE EVENT DATE: 20250902
